FAERS Safety Report 9994214 (Version 2)
Quarter: 2014Q1

REPORT INFORMATION
  Report Type: Spontaneous
  Country: BE (occurrence: BE)
  Receive Date: 20140310
  Receipt Date: 20140310
  Transmission Date: 20141002
  Serious: Yes (Death)
  Sender: FDA-Public Use
  Company Number: BE-BAXTER-2014BAX006028

PATIENT
  Age: 69 Year
  Sex: Male

DRUGS (2)
  1. EXTRANEAL [Suspect]
     Indication: DIABETIC NEPHROPATHY
     Route: 033
     Dates: end: 20140204
  2. PHYSIONEAL 40 GLUCOSE 1,36%, SOLUTION POUR DIALYSE P?RITON?ALE [Suspect]
     Indication: DIABETIC NEPHROPATHY
     Route: 033
     Dates: end: 20140204

REACTIONS (2)
  - Cardio-respiratory arrest [Fatal]
  - Post procedural complication [Fatal]
